FAERS Safety Report 5199011-0 (Version None)
Quarter: 2007Q1

REPORT INFORMATION
  Report Type: 
  Country: None (occurrence: None)
  Receive Date: 20070104
  Receipt Date: 20070103
  Transmission Date: 20070707
  Serious: Yes (Hospitalization, Other)
  Sender: FDA-Public Use
  Company Number: US-BAYER-200616849BWH

PATIENT
  Age: 34 Year
  Sex: Male

DRUGS (1)
  1. AVELOX [Suspect]
     Indication: BRONCHITIS
     Route: 048
     Dates: start: 20061115, end: 20061115

REACTIONS (4)
  - ANAPHYLACTIC REACTION [None]
  - BURNING SENSATION [None]
  - LOSS OF CONSCIOUSNESS [None]
  - TIBIA FRACTURE [None]
